FAERS Safety Report 5622578-2 (Version None)
Quarter: 2008Q1

REPORT INFORMATION
  Report Type: 
  Country: None (occurrence: None)
  Receive Date: 20080114
  Receipt Date: 20070703
  Transmission Date: 20080703
  Serious: Yes (Hospitalization)
  Sender: FDA-Public Use
  Company Number: A03200604982

PATIENT
  Age: 78 Year
  Sex: Female
  Weight: 54.5 kg

DRUGS (17)
  1. PLAVIX [Suspect]
     Indication: ACUTE MYOCARDIAL INFARCTION
     Dosage: 75 MG QD - ORAL
     Route: 048
     Dates: start: 20060601, end: 20060731
  2. ATORVASTATIN CALCIUM [Concomitant]
  3. CELECOXIB [Concomitant]
  4. RALOXIFENE HYDROCHLORIDE [Concomitant]
  5. AMLODIPINE BESILATE [Concomitant]
  6. BENZONATATE [Concomitant]
  7. LISINOPRIL [Concomitant]
  8. LANSOPRAZOLE [Concomitant]
  9. ESCITALOPRAM OXALATE [Concomitant]
  10. FLUTICASONE PROPIONATE + SALMETEROL [Concomitant]
  11. TIOTROPIUM BROMIDE [Concomitant]
  12. ALBUTEROL [Concomitant]
  13. VITAMIN CAP [Concomitant]
  14. ACETYLSALICYLIC ACID SRT [Concomitant]
  15. IBUPROFEN [Concomitant]
  16. IBANDRONATE SODIUM [Concomitant]
  17. VICODIN [Concomitant]

REACTIONS (9)
  - ASTHENIA [None]
  - BLOOD URINE PRESENT [None]
  - CONTUSION [None]
  - DIZZINESS [None]
  - GASTROINTESTINAL HAEMORRHAGE [None]
  - NORMOCHROMIC NORMOCYTIC ANAEMIA [None]
  - PYREXIA [None]
  - RECTAL HAEMORRHAGE [None]
  - THROMBOSIS [None]
